FAERS Safety Report 7877874-5 (Version None)
Quarter: 2011Q4

REPORT INFORMATION
  Report Type: 
  Country: None (occurrence: None)
  Receive Date: 20111031
  Receipt Date: 20111031
  Transmission Date: 20120403
  Serious: No
  Sender: FDA-Public Use
  Company Number: None

PATIENT
  Sex: Female
  Weight: 80.739 kg

DRUGS (1)
  1. LYRICA [Suspect]
     Indication: FIBROMYALGIA
     Dosage: 75 MG
     Route: 048
     Dates: start: 20111020, end: 20111230

REACTIONS (3)
  - PAIN IN EXTREMITY [None]
  - SOMNOLENCE [None]
  - CONSTIPATION [None]
